FAERS Safety Report 19522460 (Version 1)
Quarter: 2021Q3

REPORT INFORMATION
  Report Type: Spontaneous
  Country: IT (occurrence: IT)
  Receive Date: 20210713
  Receipt Date: 20210713
  Transmission Date: 20211014
  Serious: Yes (Hospitalization, Other)
  Sender: FDA-Public Use
  Company Number: IT-AUROBINDO-AUR-APL-2021-029194

PATIENT
  Age: 39 Year
  Sex: Female

DRUGS (3)
  1. PAROXETINE. [Concomitant]
     Active Substance: PAROXETINE
     Indication: PERSONALITY DISORDER
     Dosage: 20 MILLIGRAM
     Route: 048
     Dates: start: 20210528
  2. GABAPENTIN. [Concomitant]
     Active Substance: GABAPENTIN
     Indication: PERSONALITY DISORDER
     Dosage: 900 MILLIGRAM
     Route: 048
     Dates: start: 20210528
  3. PARACETAMOL TABLET [Suspect]
     Active Substance: ACETAMINOPHEN
     Indication: PRODUCT USED FOR UNKNOWN INDICATION
     Dosage: 10000 MILLIGRAM TOTAL
     Route: 048
     Dates: start: 20210531, end: 20210531

REACTIONS (1)
  - Intentional self-injury [Recovered/Resolved]

NARRATIVE: CASE EVENT DATE: 20210531
